FAERS Safety Report 4602539-2 (Version None)
Quarter: 2005Q1

REPORT INFORMATION
  Report Type: 
  Country: None (occurrence: None)
  Receive Date: 20050309
  Receipt Date: 20050301
  Transmission Date: 20050727
  Serious: Yes (Other)
  Sender: FDA-Public Use
  Company Number: US-KINGPHARMUSA00001-K200500291

PATIENT
  Age: 66 Year
  Sex: Female

DRUGS (14)
  1. ALTACE [Suspect]
     Indication: HYPERTENSION
     Dosage: 10 MG, QD
     Route: 048
     Dates: start: 19980101, end: 20050112
  2. ALLOPURINOL [Suspect]
     Indication: GOUT
     Dosage: 200 MG, QD
     Route: 048
     Dates: start: 20030509, end: 20041230
  3. QUININE SULFATE [Concomitant]
     Indication: MUSCLE SPASMS
     Dosage: 300 MG, UNK
     Route: 048
     Dates: start: 20030901
  4. ATORVASTATIN [Concomitant]
     Indication: DYSLIPIDAEMIA
     Dosage: 10 MG, UNK
     Route: 048
     Dates: start: 20020225
  5. BUMETANIDE [Concomitant]
     Indication: HYPERTENSION
     Dosage: 5 MG, UNK
     Route: 048
     Dates: start: 20010908
  6. SPIRONOLACTONE [Concomitant]
     Indication: HYPERTENSION
     Dosage: 50 MG, UNK
     Route: 048
     Dates: start: 20040112
  7. DOXAZOSIN [Concomitant]
     Indication: HYPERTENSION
     Dosage: 2 MG, UNK
     Route: 048
     Dates: start: 20021125
  8. METFORMIN [Concomitant]
     Indication: DIABETES MELLITUS
     Dosage: 500 MG, TID
     Route: 048
     Dates: start: 19960614, end: 20050112
  9. OMEPRAZOLE [Concomitant]
     Indication: DYSPEPSIA
     Dosage: 20 MG, UNK
     Route: 048
     Dates: start: 20030509
  10. ASPIRIN [Concomitant]
     Indication: PROPHYLAXIS
     Dosage: 75 MG, UNK
     Route: 048
     Dates: start: 19890106
  11. DIAZEPAM [Concomitant]
     Indication: ANXIETY DISORDER
     Dosage: 2 MG, UNK
     Route: 048
     Dates: start: 20020101
  12. HUMALOG [Concomitant]
     Indication: DIABETES MELLITUS
     Dosage: UNK, BID
     Route: 058
     Dates: start: 20010501
  13. PREGABALIN [Suspect]
     Indication: DIABETIC NEUROPATHY
     Dosage: VARYING DOSAGE
     Route: 048
     Dates: start: 20021106
  14. PREGABALIN [Suspect]
     Dosage: 100 MG, TID
     Route: 048

REACTIONS (4)
  - DRY SKIN [None]
  - ECZEMA [None]
  - LICHEN SCLEROSUS [None]
  - PSORIASIS [None]
